FAERS Safety Report 7491392-8 (Version None)
Quarter: 2011Q2

REPORT INFORMATION
  Report Type: 
  Country: None (occurrence: None)
  Receive Date: 20110519
  Receipt Date: 20110509
  Transmission Date: 20111010
  Serious: Yes (Hospitalization)
  Sender: FDA-Public Use
  Company Number: PHHY2011BR39518

PATIENT
  Sex: Female

DRUGS (2)
  1. SALBUTAMOL SULFATE [Concomitant]
  2. FORMOTEROL FUMARATE [Suspect]
     Dosage: UNK UKN, UNK

REACTIONS (3)
  - INFECTION [None]
  - ASTHMA [None]
  - TREMOR [None]
